FAERS Safety Report 11349420 (Version 1)
Quarter: 2015Q3

REPORT INFORMATION
  Report Type: Spontaneous
  Country: US (occurrence: None)
  Receive Date: 20150805
  Receipt Date: 20150805
  Transmission Date: 20151125
  Serious: Yes (Other)
  Sender: FDA-Public Use
  Company Number: None

PATIENT
  Age: 32 Year
  Sex: Female

DRUGS (1)
  1. CREST WHITESTRIPS DENTAL WHITENING SYSTEM UNKNOWN THE PROCTER + GAMBLE COMPANY [Suspect]
     Active Substance: HYDROGEN PEROXIDE
     Indication: TOOTH DISCOLOURATION
     Dosage: MAYBE WORN LONGER AMOUNT OF TIME  UNKNOWN INTRAORAL
     Dates: end: 2005

REACTIONS (7)
  - Tooth loss [None]
  - Periodontal disease [None]
  - Traumatic tooth displacement [None]
  - Dental caries [None]
  - Tooth injury [None]
  - Intentional device misuse [None]
  - Tooth extraction [None]

NARRATIVE: CASE EVENT DATE: 20050101
